FAERS Safety Report 15934347 (Version 1)
Quarter: 2019Q1

REPORT INFORMATION
  Report Type: Spontaneous
  Country: ES (occurrence: ES)
  Receive Date: 20190207
  Receipt Date: 20190207
  Transmission Date: 20190417
  Serious: Yes (Hospitalization, Other)
  Sender: FDA-Public Use
  Company Number: PHHY2019ES023379

PATIENT
  Age: 56 Year
  Sex: Female

DRUGS (2)
  1. BUPROPION. [Suspect]
     Active Substance: BUPROPION
     Indication: SMOKING CESSATION THERAPY
     Dosage: 150 MG, QD
     Route: 065
  2. BUPROPION. [Suspect]
     Active Substance: BUPROPION
     Dosage: 150 MG, Q12H
     Route: 065

REACTIONS (6)
  - Nausea [Unknown]
  - Phonophobia [Unknown]
  - Headache [Unknown]
  - Vomiting [Unknown]
  - Reversible cerebral vasoconstriction syndrome [Recovered/Resolved]
  - Photophobia [Unknown]
